FAERS Safety Report 8933581 (Version 2)
Quarter: 2013Q4

REPORT INFORMATION
  Report Type: Spontaneous
  Country: JP (occurrence: JP)
  Receive Date: 20121128
  Receipt Date: 20131105
  Transmission Date: 20140711
  Serious: Yes (Death, Other)
  Sender: FDA-Public Use
  Company Number: JP-JHP PHARMACEUTICALS, LLC-JHP201200549

PATIENT
  Age: 69 Year
  Sex: Male

DRUGS (10)
  1. DANTRIUM [Suspect]
     Indication: NEUROLEPTIC MALIGNANT SYNDROME
     Dosage: UNK
     Dates: start: 2010
  2. AMANTADINE HYDROCHLORIDE [Concomitant]
     Indication: PARKINSON^S DISEASE
     Dosage: 200 MG, DAILY
     Route: 048
     Dates: start: 2010
  3. AMANTADINE HYDROCHLORIDE [Concomitant]
     Dosage: 300 MG, DAILY
     Route: 048
  4. AMANTADINE HYDROCHLORIDE [Concomitant]
     Dosage: 100 MG, DAILY
     Route: 048
  5. RISPERIDONE [Concomitant]
     Indication: DELIRIUM
     Dosage: 1 MG, DAILY
     Route: 048
     Dates: start: 2010
  6. QUETIAPINE FUMARATE [Concomitant]
     Indication: DELIRIUM
     Dosage: 25 MG, DAILY
     Route: 048
     Dates: start: 2010, end: 20120613
  7. QUETIAPINE FUMARATE [Concomitant]
     Dosage: 20 MG, DAILY
     Route: 048
     Dates: start: 2010, end: 20120613
  8. QUETIAPINE FUMARATE [Concomitant]
     Dosage: 25 MG, DAILY
     Route: 048
     Dates: start: 2010, end: 20120613
  9. LEVODOPA [Concomitant]
     Indication: VASCULAR PARKINSONISM
     Dosage: 300 MG, DAILY
     Route: 048
     Dates: start: 2010
  10. LEVODOPA [Concomitant]
     Dosage: 300 MG, DAILY
     Route: 048

REACTIONS (1)
  - Drug ineffective [Fatal]
